FAERS Safety Report 15791315 (Version 2)
Quarter: 2019Q1

REPORT INFORMATION
  Report Type: Spontaneous
  Country: DE (occurrence: DE)
  Receive Date: 20190104
  Receipt Date: 20190213
  Transmission Date: 20190417
  Serious: Yes (Life-Threatening, Other)
  Sender: FDA-Public Use
  Company Number: DE-B.I. PHARMACEUTICALS,INC./RIDGEFIELD-2019-BI-000251

PATIENT
  Age: 87 Year
  Sex: Male
  Weight: 80 kg

DRUGS (1)
  1. PRADAXA [Suspect]
     Active Substance: DABIGATRAN ETEXILATE MESYLATE
     Indication: ATRIAL FIBRILLATION
     Route: 065

REACTIONS (15)
  - Pupillary disorder [Unknown]
  - Cerebral artery stenosis [Unknown]
  - Arteriosclerosis [Unknown]
  - Hemiparesis [Unknown]
  - Aphasia [Unknown]
  - Apraxia [Unknown]
  - Gait disturbance [Unknown]
  - Mobility decreased [Unknown]
  - Speech disorder [Unknown]
  - Cerebrovascular accident [Not Recovered/Not Resolved]
  - Disease progression [Unknown]
  - Ill-defined disorder [Unknown]
  - Hypersensitivity [Unknown]
  - Thrombocytosis [Unknown]
  - Loss of consciousness [Unknown]

NARRATIVE: CASE EVENT DATE: 20181122
